FAERS Safety Report 25413571 (Version 2)
Quarter: 2025Q2

REPORT INFORMATION
  Report Type: Spontaneous
  Country: GB (occurrence: GB)
  Receive Date: 20250609
  Receipt Date: 20250625
  Transmission Date: 20250716
  Serious: Yes (Other)
  Sender: ORGANON
  Company Number: GB-ORGANON-O2506GBR000595

PATIENT
  Age: 29 Year
  Sex: Female

DRUGS (7)
  1. NEXPLANON [Suspect]
     Active Substance: ETONOGESTREL
     Indication: Contraception
     Route: 059
     Dates: start: 202305, end: 20250604
  2. NOVORAPID [Concomitant]
     Active Substance: INSULIN ASPART
  3. LEVEMIR [Concomitant]
     Active Substance: INSULIN DETEMIR
  4. DULOXETINE [Concomitant]
     Active Substance: DULOXETINE
  5. IRBESARTAN [Concomitant]
     Active Substance: IRBESARTAN
  6. IBUPROFEN [Concomitant]
     Active Substance: IBUPROFEN
  7. ACETAMINOPHEN [Concomitant]
     Active Substance: ACETAMINOPHEN

REACTIONS (4)
  - Pregnancy with implant contraceptive [Recovered/Resolved]
  - Unintended pregnancy [Recovered/Resolved]
  - Abortion induced [Unknown]
  - Drug ineffective [Unknown]

NARRATIVE: CASE EVENT DATE: 20250401
